FAERS Safety Report 4739739-7 (Version None)
Quarter: 2005Q3

REPORT INFORMATION
  Report Type: 
  Country: None (occurrence: None)
  Receive Date: 20050810
  Receipt Date: 20050506
  Transmission Date: 20060218
  Serious: No
  Sender: FDA-Public Use
  Company Number: US-GLAXOSMITHKLINE-A0557554A

PATIENT
  Age: 73 Year
  Sex: Male

DRUGS (3)
  1. PAXIL [Suspect]
     Indication: DEPRESSION
     Dosage: 20MG PER DAY
     Route: 048
     Dates: start: 20020101
  2. ZOCOR [Concomitant]
  3. GLAUCOMA MEDICATION (UNSPECIFIED) [Concomitant]
     Route: 065

REACTIONS (2)
  - LIBIDO DECREASED [None]
  - NIGHTMARE [None]
